FAERS Safety Report 9044907 (Version 1)
Quarter: 2013Q1

REPORT INFORMATION
  Report Type: Report from Study
  Country: JP (occurrence: JP)
  Receive Date: 20130130
  Receipt Date: 20130130
  Transmission Date: 20140127
  Serious: Yes (Other)
  Sender: FDA-Public Use
  Company Number: JP-GLAXOSMITHKLINE-B0860300A

PATIENT
  Age: 59 None
  Sex: Female
  Weight: 65 kg

DRUGS (17)
  1. REVOLADE [Suspect]
     Indication: IDIOPATHIC THROMBOCYTOPENIC PURPURA
     Route: 048
     Dates: start: 20110204, end: 20110315
  2. REVOLADE [Suspect]
     Indication: IDIOPATHIC THROMBOCYTOPENIC PURPURA
     Route: 048
     Dates: start: 20110316
  3. CRAVIT [Suspect]
     Indication: GASTROENTERITIS
     Route: 048
     Dates: start: 20110808, end: 20110813
  4. PREDONINE [Suspect]
     Indication: IDIOPATHIC THROMBOCYTOPENIC PURPURA
     Route: 048
     Dates: end: 20110331
  5. PREDONINE [Suspect]
     Indication: IDIOPATHIC THROMBOCYTOPENIC PURPURA
     Route: 048
     Dates: start: 20110401, end: 20110426
  6. PREDONINE [Suspect]
     Indication: IDIOPATHIC THROMBOCYTOPENIC PURPURA
     Route: 048
     Dates: start: 20110427, end: 20110519
  7. PREDONINE [Suspect]
     Indication: IDIOPATHIC THROMBOCYTOPENIC PURPURA
     Route: 048
     Dates: start: 20110520, end: 20110616
  8. PREDONINE [Suspect]
     Indication: IDIOPATHIC THROMBOCYTOPENIC PURPURA
     Route: 048
     Dates: start: 20110617, end: 20110630
  9. PREDONINE [Suspect]
     Indication: IDIOPATHIC THROMBOCYTOPENIC PURPURA
     Route: 048
     Dates: start: 20110701
  10. PREDONINE [Suspect]
     Indication: IDIOPATHIC THROMBOCYTOPENIC PURPURA
     Route: 048
  11. AMLODIN [Concomitant]
     Route: 048
  12. TAKEPRON [Concomitant]
     Route: 048
  13. AMOBAN [Concomitant]
     Route: 048
  14. MERCAZOLE [Concomitant]
     Route: 048
  15. ACTOS [Concomitant]
     Route: 048
  16. AMARYL [Concomitant]
     Route: 048
  17. PREDNISOLONE [Concomitant]
     Indication: IDIOPATHIC THROMBOCYTOPENIC PURPURA
     Route: 048

REACTIONS (6)
  - Enterocolitis [Recovered/Resolved]
  - Enterocolitis [Recovered/Resolved]
  - Liver disorder [Recovered/Resolved]
  - Gamma-glutamyltransferase increased [Recovered/Resolved]
  - White blood cell count increased [Recovered/Resolved]
  - Cystitis [Recovered/Resolved]
